FAERS Safety Report 16967166 (Version 1)
Quarter: 2019Q4

REPORT INFORMATION
  Report Type: Spontaneous
  Country: ES (occurrence: ES)
  Receive Date: 20191028
  Receipt Date: 20191028
  Transmission Date: 20200122
  Serious: Yes (Other)
  Sender: FDA-Public Use
  Company Number: ES-MYLANLABS-2019M1101124

PATIENT
  Age: 3 Month
  Sex: Male
  Weight: 6.9 kg

DRUGS (2)
  1. DELTIUS [Concomitant]
     Active Substance: CHOLECALCIFEROL
     Indication: PROPHYLAXIS
     Dosage: 2 GTT DROPS, QD,1/12 MILLILITRE)
     Route: 048
     Dates: start: 20190213
  2. OMEPRAZOLE. [Suspect]
     Active Substance: OMEPRAZOLE
     Indication: INFANTILE SPITTING UP
     Dosage: 1.5 MILLILITER, BID
     Route: 048
     Dates: start: 20190326, end: 20190502

REACTIONS (2)
  - Hypertrichosis [Recovering/Resolving]
  - Skin hyperpigmentation [Recovering/Resolving]

NARRATIVE: CASE EVENT DATE: 20190413
